FAERS Safety Report 7726955-5 (Version None)
Quarter: 2011Q3

REPORT INFORMATION
  Report Type: 
  Country: None (occurrence: None)
  Receive Date: 20110902
  Receipt Date: 20110830
  Transmission Date: 20111222
  Serious: Yes (Other)
  Sender: FDA-Public Use
  Company Number: FR-PFIZER INC-2011201348

PATIENT
  Age: 87 Year
  Sex: Female

DRUGS (5)
  1. DURAGESIC-100 [Suspect]
     Indication: PROCEDURAL PAIN
     Dosage: 50UG/HOUR
     Route: 062
     Dates: start: 20101123, end: 20101126
  2. ESCITALOPRAM OXALATE [Suspect]
     Indication: DEPRESSION
     Dosage: 10 MG, 1X/DAY
     Route: 048
     Dates: start: 20101123, end: 20101126
  3. XANAX [Suspect]
     Indication: DEPRESSION
     Dosage: 0.25 MG, 3X/DAY
     Route: 048
     Dates: start: 20101123, end: 20101126
  4. MORPHINE SULFATE [Suspect]
     Indication: PROCEDURAL PAIN
     Dosage: 10 MG, 6X/DAY
     Route: 048
     Dates: start: 20101123, end: 20101126
  5. MORPHINE SULFATE [Suspect]
     Indication: PROCEDURAL PAIN
     Dosage: 30 MG, 2X/DAY
     Route: 048
     Dates: start: 20101123, end: 20101126

REACTIONS (3)
  - SOMNOLENCE [None]
  - COMA SCALE ABNORMAL [None]
  - MIOSIS [None]
